FAERS Safety Report 4800924-7 (Version None)
Quarter: 2005Q4

REPORT INFORMATION
  Report Type: 
  Country: None (occurrence: None)
  Receive Date: 20051011
  Receipt Date: 20050923
  Transmission Date: 20060501
  Serious: Yes (Hospitalization)
  Sender: FDA-Public Use
  Company Number: 2005P1000453

PATIENT
  Age: 64 Year
  Sex: Male
  Weight: 64 kg

DRUGS (10)
  1. RETEVASE [Suspect]
     Indication: ACUTE MYOCARDIAL INFARCTION
     Dosage: IV
     Route: 042
     Dates: start: 20040531, end: 20040531
  2. ABCIXIMAB (ABCIXIMAB) [Suspect]
     Indication: ACUTE MYOCARDIAL INFARCTION
     Dosage: IV
     Route: 042
     Dates: start: 20040531, end: 20040531
  3. WARFARIN [Concomitant]
  4. AMIODARONE [Concomitant]
  5. CHOLESTEROL- AND TRIGLYCERIDE REDUCERS [Concomitant]
  6. LASIX [Concomitant]
  7. PERINDOPRIL [Concomitant]
  8. ASPIRIN [Concomitant]
  9. DIGOXIN [Concomitant]
  10. TICLID [Concomitant]

REACTIONS (11)
  - AORTIC VALVE INCOMPETENCE [None]
  - ATRIAL FIBRILLATION [None]
  - CARDIAC ARREST [None]
  - CARDIOVASCULAR DISORDER [None]
  - DILATATION ATRIAL [None]
  - DILATATION VENTRICULAR [None]
  - DISEASE RECURRENCE [None]
  - MITRAL VALVE INCOMPETENCE [None]
  - MITRAL VALVE PROLAPSE [None]
  - TRICUSPID VALVE INCOMPETENCE [None]
  - VENTRICULAR FIBRILLATION [None]
